FAERS Safety Report 21658107 (Version 1)
Quarter: 2022Q4

REPORT INFORMATION
  Report Type: Spontaneous
  Country: ES (occurrence: ES)
  Receive Date: 20221129
  Receipt Date: 20221129
  Transmission Date: 20230113
  Serious: Yes (Death, Other)
  Sender: FDA-Public Use
  Company Number: ES-Shilpa Medicare Limited-SML-ES-2022-01142

PATIENT
  Age: 7 Month
  Sex: Female

DRUGS (8)
  1. MITOXANTRONE [Suspect]
     Active Substance: MITOXANTRONE HYDROCHLORIDE
     Indication: Acute megakaryocytic leukaemia
     Dosage: UNK
     Route: 065
     Dates: start: 20210310
  2. MITOXANTRONE [Suspect]
     Active Substance: MITOXANTRONE HYDROCHLORIDE
     Dosage: PLUS ONE CYCLE
     Route: 065
     Dates: start: 202106
  3. FLUDARABINE [Suspect]
     Active Substance: FLUDARABINE PHOSPHATE
     Indication: Acute megakaryocytic leukaemia
     Dosage: UNK
     Route: 065
     Dates: start: 202108
  4. CYTARABINE [Suspect]
     Active Substance: CYTARABINE
     Indication: Acute megakaryocytic leukaemia
     Dosage: TWO CYCLES
     Route: 065
     Dates: start: 202104
  5. CYTARABINE [Suspect]
     Active Substance: CYTARABINE
     Dosage: PLUS ONE CYCLE
     Route: 065
     Dates: start: 202106
  6. ETOPOSIDE [Suspect]
     Active Substance: ETOPOSIDE
     Indication: Acute megakaryocytic leukaemia
     Dosage: TWO CYCLES
     Route: 065
     Dates: start: 202104
  7. DAUNORUBICIN [Suspect]
     Active Substance: DAUNORUBICIN
     Indication: Acute megakaryocytic leukaemia
     Dosage: TWO CYCLES
     Route: 065
     Dates: start: 202104
  8. CLOFARABINE [Suspect]
     Active Substance: CLOFARABINE
     Indication: Acute megakaryocytic leukaemia
     Dosage: UNK
     Route: 065
     Dates: start: 202108

REACTIONS (3)
  - Disease progression [Fatal]
  - Leukaemia cutis [Unknown]
  - Drug ineffective [Unknown]
